FAERS Safety Report 11798049 (Version 3)
Quarter: 2016Q1

REPORT INFORMATION
  Report Type: Report from Study
  Country: US (occurrence: US)
  Receive Date: 20151203
  Receipt Date: 20160225
  Transmission Date: 20160525
  Serious: Yes (Hospitalization, Congenital Anomaly, Other)
  Sender: FDA-Public Use
  Company Number: US-UCBSA-2015038373

PATIENT
  Age: 0 Year
  Weight: 1.56 kg

DRUGS (16)
  1. MAGNESIUM SULFATE. [Concomitant]
     Active Substance: MAGNESIUM SULFATE
     Indication: PREMATURE LABOUR
     Dosage: 1 DAY
     Route: 064
     Dates: start: 20150923, end: 20150930
  2. MAGNESIUM SULFATE. [Concomitant]
     Active Substance: MAGNESIUM SULFATE
     Dosage: 1 DAY
     Route: 064
     Dates: start: 20151007, end: 20151014
  3. MAGNESIUM SULFATE. [Concomitant]
     Active Substance: MAGNESIUM SULFATE
     Dosage: 1 DAY
     Route: 064
     Dates: start: 20151028, end: 20151101
  4. BETAMETHA [Concomitant]
     Dosage: 1 SHOT 3 TOTAL
     Route: 064
     Dates: start: 20150923, end: 20150930
  5. VITAMIN B6 [Concomitant]
     Active Substance: PYRIDOXINE HYDROCHLORIDE
     Indication: NAUSEA
     Dosage: 5 DF, ONCE DAILY (QD)
     Route: 064
     Dates: start: 20150520, end: 20150722
  6. METRONIDAZOLE. [Concomitant]
     Active Substance: METRONIDAZOLE
     Indication: INFECTION
     Dosage: 2 DF, ONCE DAILY (QD)
     Route: 064
     Dates: start: 20150819, end: 20150828
  7. MAGNESIUM [Concomitant]
     Active Substance: MAGNESIUM
     Indication: PRODUCT USED FOR UNKNOWN INDICATION
     Dosage: 1 DF, ONCE DAILY (QD)
     Route: 064
     Dates: start: 20150916, end: 20151101
  8. BETAMETHA [Concomitant]
     Indication: PREMATURE LABOUR
     Dosage: 1 SHOT 1 TOTAL
     Route: 064
     Dates: start: 20151007, end: 20151014
  9. FLUVACCIN [Concomitant]
     Active Substance: INFLUENZA VIRUS VACCINE
     Indication: PRODUCT USED FOR UNKNOWN INDICATION
     Dosage: 1 SHOT 1 DAY
     Route: 064
     Dates: start: 20151007, end: 20151007
  10. CERTOLIZUMAB PEGOL RA [Suspect]
     Active Substance: CERTOLIZUMAB PEGOL
     Indication: RHEUMATOID ARTHRITIS
     Dosage: 1 SHOT EVERY 2 WEEKS (TWICE MONTHLY)
     Route: 064
     Dates: start: 20150904, end: 20151006
  11. PROCARDIA [Concomitant]
     Active Substance: NIFEDIPINE
     Indication: PREMATURE LABOUR
     Dosage: 5 DF, ONCE DAILY (QD)
     Route: 064
     Dates: start: 20150923, end: 20151101
  12. UNISOM SLEEPTABS [Concomitant]
     Active Substance: DOXYLAMINE SUCCINATE
     Indication: NAUSEA
     Dosage: 5 DF, ONCE DAILY (QD)
     Route: 064
     Dates: start: 20150520, end: 20150722
  13. CERTOLIZUMAB PEGOL RA [Suspect]
     Active Substance: CERTOLIZUMAB PEGOL
     Indication: ANKYLOSING SPONDYLITIS
  14. VITAFOL [Concomitant]
     Indication: PRODUCT USED FOR UNKNOWN INDICATION
     Dosage: 1 DF, ONCE DAILY (QD)
     Route: 064
     Dates: start: 20150709, end: 20151101
  15. PRENATAL VITAMINS [Concomitant]
     Active Substance: VITAMINS
     Indication: PRODUCT USED FOR UNKNOWN INDICATION
     Dosage: 4 DF, ONCE DAILY (QD)
     Route: 064
     Dates: start: 20150408, end: 20150708
  16. PROGESTERONE. [Concomitant]
     Active Substance: PROGESTERONE
     Indication: PREMATURE LABOUR
     Dosage: 1 DF, ONCE DAILY (QD)
     Route: 064
     Dates: start: 20150923, end: 20151101

REACTIONS (10)
  - Nephrocalcinosis [Unknown]
  - Presyncope [Unknown]
  - Respiratory arrest [Unknown]
  - Aspiration [Unknown]
  - Vaccination complication [Unknown]
  - Hydronephrosis [Unknown]
  - Apnoea [Unknown]
  - Foetal exposure during pregnancy [Unknown]
  - Dysphagia [Unknown]
  - Premature baby [Unknown]

NARRATIVE: CASE EVENT DATE: 2015
